FAERS Safety Report 7250731-3 (Version None)
Quarter: 2011Q1

REPORT INFORMATION
  Report Type: 
  Country: None (occurrence: None)
  Receive Date: 20110128
  Receipt Date: 20110125
  Transmission Date: 20110831
  Serious: Yes (Other)
  Sender: FDA-Public Use
  Company Number: PHHY2011US01463

PATIENT
  Sex: Male

DRUGS (5)
  1. ADDERALL 10 [Concomitant]
     Indication: FATIGUE
     Dosage: 20 MG, BID
     Route: 048
  2. TRICOR [Concomitant]
     Indication: BLOOD TRIGLYCERIDES INCREASED
     Dosage: UNK, QD
     Route: 048
  3. GILENYA [Suspect]
     Indication: RELAPSING-REMITTING MULTIPLE SCLEROSIS
     Dosage: 0.5 MG, DAILY
     Route: 048
     Dates: start: 20101101
  4. IMIDIN [Concomitant]
     Indication: MUSCLE SPASMS
     Dosage: 4 MG, TID
     Route: 048
  5. LIPITOR [Concomitant]
     Indication: BLOOD CHOLESTEROL INCREASED
     Dosage: 40 MG, QD
     Route: 048

REACTIONS (5)
  - UPPER RESPIRATORY TRACT INFECTION [None]
  - PULMONARY CONGESTION [None]
  - NASOPHARYNGITIS [None]
  - COUGH [None]
  - SNEEZING [None]
